FAERS Safety Report 4624167-5 (Version None)
Quarter: 2005Q1

REPORT INFORMATION
  Report Type: 
  Country: None (occurrence: None)
  Receive Date: 20050331
  Receipt Date: 20050222
  Transmission Date: 20050727
  Serious: Yes (Other)
  Sender: FDA-Public Use
  Company Number: JP-GLAXOSMITHKLINE-B0373170A

PATIENT
  Age: 17 Year
  Sex: Female

DRUGS (2)
  1. PAXIL [Suspect]
     Indication: OBSESSIVE-COMPULSIVE DISORDER
     Route: 048
     Dates: start: 20030509, end: 20050226
  2. GASMOTIN [Concomitant]
     Indication: STOMACH DISCOMFORT
     Route: 048
     Dates: start: 20041204

REACTIONS (5)
  - CONSTIPATION [None]
  - DRUG WITHDRAWAL SYNDROME [None]
  - STOMACH DISCOMFORT [None]
  - TREATMENT NONCOMPLIANCE [None]
  - URINARY INCONTINENCE [None]
